FAERS Safety Report 12760213 (Version 2)
Quarter: 2016Q4

REPORT INFORMATION
  Report Type: Spontaneous
  Country: IT (occurrence: IT)
  Receive Date: 20160919
  Receipt Date: 20161003
  Transmission Date: 20170207
  Serious: Yes (Death, Hospitalization)
  Sender: FDA-Public Use
  Company Number: IT-TEVA-692841ACC

PATIENT
  Age: 44 Year
  Sex: Male

DRUGS (2)
  1. FLUOROURACILE TEVA - 1 G/20 ML SOLUZIONE PER INFUSIONE [Suspect]
     Active Substance: FLUOROURACIL
     Indication: OESOPHAGEAL ADENOCARCINOMA
     Dosage: 400 MG/M2 CYCLICAL
     Route: 042
     Dates: start: 20160812, end: 20160816
  2. CISPLATINO TEVA ITALIA - 1MG/ML - TEVA ITALIA S.R.L. [Concomitant]
     Indication: PRODUCT USED FOR UNKNOWN INDICATION
     Dosage: 90 MG/M2
     Route: 042

REACTIONS (1)
  - Myocardial infarction [Fatal]

NARRATIVE: CASE EVENT DATE: 20160816
